FAERS Safety Report 19461653 (Version 1)
Quarter: 2021Q2

REPORT INFORMATION
  Report Type: Report from Study
  Country: US (occurrence: US)
  Receive Date: 20210625
  Receipt Date: 20210625
  Transmission Date: 20210717
  Serious: Yes (Hospitalization)
  Sender: FDA-Public Use
  Company Number: US-JNJFOC-20210644822

PATIENT
  Age: 74 Year
  Sex: Female
  Weight: 83.99 kg

DRUGS (1)
  1. SELEXIPAG [Suspect]
     Active Substance: SELEXIPAG
     Indication: PULMONARY ARTERIAL HYPERTENSION
     Dosage: UPTRAVI 800 MCG ORALLY 2 TIMES DAILY
     Route: 048

REACTIONS (4)
  - Urinary tract infection [Unknown]
  - Fluid retention [Unknown]
  - Product dose omission issue [Unknown]
  - Hypersensitivity [Unknown]

NARRATIVE: CASE EVENT DATE: 202105
